FAERS Safety Report 5329771-7 (Version None)
Quarter: 2007Q2

REPORT INFORMATION
  Report Type: 
  Country: None (occurrence: None)
  Receive Date: 20070521
  Receipt Date: 20070509
  Transmission Date: 20071010
  Serious: Yes (Hospitalization)
  Sender: FDA-Public Use
  Company Number: NL-SOLVAY-00207032298

PATIENT
  Age: 12700 Day
  Sex: Female

DRUGS (6)
  1. PROGESTERONE [Suspect]
     Indication: ILL-DEFINED DISORDER
     Dosage: DAILY DOSE: 600 MILLIGRAM(S)
     Route: 065
     Dates: start: 20070327, end: 20070502
  2. ORG 36286 AND PLACEBO OR PUREGON AND PLACEBO [Suspect]
     Indication: OVARIAN HYPERSTIMULATION SYNDROME
     Dosage: DAILY DOSE:  UNKNOWN
     Route: 058
     Dates: start: 20070316, end: 20070316
  3. ORG 36286 AND PLACEBO OR PUREGON AND PLACEBO [Suspect]
     Dosage: DAILY DOSE:  UNKNOWN
     Route: 058
     Dates: start: 20070316, end: 20070322
  4. FOLLINTROPIN BETA [Suspect]
     Indication: ILL-DEFINED DISORDER
     Dosage: DAILY DOSE: 200 INTERNATIONAL UNIT(S)
     Route: 058
     Dates: start: 20070323, end: 20070325
  5. GANIRELIX ACETATE INJECTION [Suspect]
     Indication: PROPHYLAXIS
     Dosage: DAILY DOSE: .25 MILLIGRAM(S)
     Route: 058
     Dates: start: 20070320, end: 20070325
  6. CHORIONIC GONADOTROPIN [Suspect]
     Indication: OVULATION INDUCTION
     Dosage: DAILY DOSE: 10000 INTERNATIONAL UNIT(S)
     Route: 058
     Dates: start: 20070325, end: 20070325

REACTIONS (2)
  - DRUG EXPOSURE BEFORE PREGNANCY [None]
  - ECTOPIC PREGNANCY [None]
